FAERS Safety Report 8375999-1 (Version None)
Quarter: 2012Q2

REPORT INFORMATION
  Report Type: 
  Country: None (occurrence: None)
  Receive Date: 20120522
  Receipt Date: 20120511
  Transmission Date: 20120825
  Serious: Yes (Hospitalization, Other)
  Sender: FDA-Public Use
  Company Number: PHHY2012FR041245

PATIENT
  Sex: Female

DRUGS (12)
  1. LEVOTHYROXINE SODIUM [Concomitant]
  2. DILTIAZEM HCL [Concomitant]
  3. ALLOPURINOL [Concomitant]
  4. FORADIL [Interacting]
  5. RABEPRAZOLE SODIUM [Concomitant]
  6. BRONCHODUAL [Concomitant]
  7. LOPERAMIDE [Concomitant]
  8. VITAMIN D [Concomitant]
  9. ONBREZ [Suspect]
     Indication: CHRONIC OBSTRUCTIVE PULMONARY DISEASE
     Dosage: 150 UG, DAILY
     Dates: start: 20111001
  10. CRESTOR [Concomitant]
  11. FLUTICASONE PROPIONATE [Concomitant]
  12. VALSARTAN [Concomitant]

REACTIONS (7)
  - OEDEMA PERIPHERAL [None]
  - COUGH [None]
  - PAIN [None]
  - ARTHRALGIA [None]
  - HEADACHE [None]
  - NASOPHARYNGITIS [None]
  - OBSTRUCTIVE AIRWAYS DISORDER [None]
